FAERS Safety Report 6025817-1 (Version None)
Quarter: 2009Q1

REPORT INFORMATION
  Report Type: 
  Country: None (occurrence: None)
  Receive Date: 20090102
  Receipt Date: 20081229
  Transmission Date: 20090719
  Serious: Yes (Life-Threatening)
  Sender: FDA-Public Use
  Company Number: GB-RANBAXY-2008RR-20205

PATIENT
  Age: 56 Year
  Sex: Male

DRUGS (9)
  1. LOSARTAN [Suspect]
     Indication: HYPERTENSION
     Dosage: 100 MG, UNK
     Route: 048
  2. METFORMIN HCL [Suspect]
     Indication: DIABETES MELLITUS
     Dosage: 1 G, TID
     Route: 048
  3. AMLODIPINE [Concomitant]
     Route: 065
  4. ASPIRIN [Concomitant]
     Route: 065
  5. ATORVASTATIN CALCIUM [Concomitant]
     Route: 065
  6. BENDROFLUMETHIAZIDE [Concomitant]
     Route: 065
  7. DOXAZOSIN MESYLATE [Concomitant]
     Route: 065
  8. MINOCYCLINE HCL [Concomitant]
     Route: 065
  9. SILDENAFIL CITRATE [Concomitant]
     Route: 065

REACTIONS (2)
  - LACTIC ACIDOSIS [None]
  - RENAL FAILURE ACUTE [None]
